FAERS Safety Report 9432434 (Version 2)
Quarter: 2013Q3

REPORT INFORMATION
  Report Type: Spontaneous
  Country: FR (occurrence: FR)
  Receive Date: 20130731
  Receipt Date: 20130813
  Transmission Date: 20140515
  Serious: Yes (Death, Life-Threatening, Hospitalization, Other)
  Sender: FDA-Public Use
  Company Number: FR-PFIZER INC-2013219145

PATIENT
  Age: 68 Year
  Sex: Female

DRUGS (1)
  1. XALKORI [Suspect]
     Indication: NON-SMALL CELL LUNG CANCER
     Dosage: 250 MG, 2X/DAY
     Route: 048
     Dates: start: 20130128, end: 20130705

REACTIONS (6)
  - Pneumomediastinum [Fatal]
  - Bronchial fistula [Fatal]
  - Acute respiratory distress syndrome [Unknown]
  - Large intestinal obstruction [Unknown]
  - Disease progression [Unknown]
  - Non-small cell lung cancer [Unknown]
